FAERS Safety Report 9351607 (Version 1)
Quarter: 2013Q2

REPORT INFORMATION
  Report Type: Report from Study
  Country: US (occurrence: US)
  Receive Date: 20130617
  Receipt Date: 20130617
  Transmission Date: 20140414
  Serious: Yes (Hospitalization)
  Sender: FDA-Public Use
  Company Number: PHEH2013US012939

PATIENT
  Age: 55 Year
  Sex: Female

DRUGS (6)
  1. TASIGNA [Suspect]
     Indication: CHRONIC MYELOID LEUKAEMIA
     Dosage: 300 MG, BID
     Route: 048
     Dates: start: 20130325
  2. PREDNISONE [Concomitant]
     Dosage: UNK UKN, UNK
  3. ONDANSETRON [Concomitant]
     Dosage: UNK UKN, UNK
  4. LAMICTAL [Concomitant]
     Dosage: UNK UKN, UNK
  5. XANAX [Concomitant]
     Dosage: UNK UKN, UNK
  6. CYMBALTA [Concomitant]
     Dosage: UNK UKN, UNK

REACTIONS (1)
  - Pneumonia [Recovering/Resolving]
